FAERS Safety Report 4879432-3 (Version None)
Quarter: 2006Q1

REPORT INFORMATION
  Report Type: 
  Country: None (occurrence: None)
  Receive Date: 20060112
  Receipt Date: 20050721
  Transmission Date: 20060701
  Serious: Yes (Other)
  Sender: FDA-Public Use
  Company Number: US-AVENTIS-200517800US

PATIENT
  Sex: Male
  Weight: 106.35 kg

DRUGS (9)
  1. LANTUS [Suspect]
     Indication: DIABETES MELLITUS INSULIN-DEPENDENT
     Dosage: DOSE UNIT: UNITS
     Route: 058
     Dates: start: 20050601
  2. LASIX [Concomitant]
     Indication: HYPERTENSION
     Dates: start: 20040801
  3. LASIX [Concomitant]
     Indication: RENAL FAILURE
     Dates: start: 20040801
  4. NORVASC [Concomitant]
     Indication: HYPERTENSION
     Dates: start: 20020101
  5. MONOPRIL [Concomitant]
     Indication: HYPERTENSION
     Dates: start: 20020101
  6. PRAVACHOL [Concomitant]
     Indication: HYPERCHOLESTEROLAEMIA
     Dates: start: 20040801
  7. PHOSLO [Concomitant]
     Indication: RENAL FAILURE
     Dates: start: 20040701
  8. HUMULIN R [Concomitant]
     Indication: DIABETES MELLITUS INSULIN-DEPENDENT
     Dosage: FREQUENCY: BEFORE MEALS; DOSE UNIT: UNITS
     Dates: start: 19870101, end: 20050701
  9. AMARYL [Concomitant]
     Dates: start: 20050801

REACTIONS (4)
  - ANAEMIA [None]
  - BLOOD GLUCOSE DECREASED [None]
  - GLYCOSYLATED HAEMOGLOBIN DECREASED [None]
  - RENAL FAILURE [None]
